FAERS Safety Report 8007065-9 (Version None)
Quarter: 2011Q4

REPORT INFORMATION
  Report Type: 
  Country: None (occurrence: None)
  Receive Date: 20111227
  Receipt Date: 20111220
  Transmission Date: 20120403
  Serious: Yes (Hospitalization)
  Sender: FDA-Public Use
  Company Number: FR-PFIZER INC-2011308214

PATIENT
  Age: 14 Year
  Sex: Female

DRUGS (13)
  1. VFEND [Interacting]
     Dosage: UNK
  2. TACROLIMUS [Interacting]
     Indication: LUNG TRANSPLANT
     Dosage: UNK
     Dates: end: 20110914
  3. ZITHROMAX [Interacting]
     Dosage: 250 MG, 3 TIMES PER WEEK
     Dates: start: 20110912
  4. INSULIN [Concomitant]
     Dosage: UNK
  5. VFEND [Suspect]
     Indication: ASPERGILLOSIS
     Dosage: 200 MG, 2X/DAY
     Route: 048
     Dates: start: 20110912, end: 20110928
  6. RIMIFON [Concomitant]
     Indication: TUBERCULOSIS
     Dosage: UNK
     Dates: start: 20110608
  7. MYCOPHENOLATE MOFETIL (CELLCEPT) [Concomitant]
     Indication: LUNG TRANSPLANT
     Dosage: UNK
     Dates: start: 20051020
  8. CREON [Concomitant]
     Dosage: UNK
  9. A 313 [Concomitant]
     Dosage: UNK
  10. TACROLIMUS [Interacting]
     Dosage: 0.5 MG, 2X/DAY
     Route: 048
     Dates: start: 20110916
  11. RIFADIN [Interacting]
     Indication: TUBERCULOSIS
     Dosage: 600 MG, 1X/DAY
     Route: 048
     Dates: start: 20110608, end: 20111009
  12. ZITHROMAX [Interacting]
     Indication: OPPORTUNISTIC INFECTION PROPHYLAXIS
     Dosage: 500 MG, ALTERNATE DAY
     Route: 048
  13. CANCIDAS [Interacting]
     Indication: ASPERGILLOSIS
     Dosage: 1 DF, 1X/DAY
     Route: 042
     Dates: start: 20110913, end: 20110922

REACTIONS (3)
  - DRUG LEVEL INCREASED [None]
  - DRUG INTERACTION [None]
  - RENAL FAILURE ACUTE [None]
